FAERS Safety Report 7482724-5 (Version None)
Quarter: 2011Q2

REPORT INFORMATION
  Report Type: 
  Country: None (occurrence: None)
  Receive Date: 20110516
  Receipt Date: 20110503
  Transmission Date: 20111010
  Serious: Yes (Hospitalization)
  Sender: FDA-Public Use
  Company Number: US-UCBSA-025024

PATIENT
  Sex: Male
  Weight: 95 kg

DRUGS (10)
  1. KLONOPIN [Concomitant]
     Indication: BIPOLAR DISORDER
  2. ESKALITH [Concomitant]
     Indication: BIPOLAR DISORDER
  3. CERTOLIZUMAB PEGOL [Suspect]
     Route: 058
     Dates: start: 20090101
  4. FAMOTIDINE [Concomitant]
  5. LEVAQUIN [Concomitant]
  6. CLONAZEPAM [Concomitant]
  7. CERTOLIZUMAB PEGOL [Suspect]
     Indication: CROHN'S DISEASE
     Dosage: C87085
     Route: 058
     Dates: end: 20090101
  8. LITHIUM [Concomitant]
  9. CERTOLIZUMAB PEGOL [Suspect]
     Dosage: FOR THE FIRST THREE DOSES
     Route: 058
     Dates: start: 20090622, end: 20090101
  10. METRONIDAZOLE [Concomitant]

REACTIONS (1)
  - DIVERTICULITIS [None]
